FAERS Safety Report 9148676 (Version 1)
Quarter: 2013Q1

REPORT INFORMATION
  Report Type: Spontaneous
  Country: US (occurrence: None)
  Receive Date: 20130228
  Receipt Date: 20130228
  Transmission Date: 20140127
  Serious: Yes (Life-Threatening, Hospitalization)
  Sender: FDA-Public Use
  Company Number: None

PATIENT
  Age: 64 Year
  Sex: Male
  Weight: 84 kg

DRUGS (6)
  1. LENALIDOMIDE [Suspect]
     Indication: ACUTE MYELOID LEUKAEMIA
     Route: 048
     Dates: start: 20130131, end: 20130215
  2. LISINOPRIL [Concomitant]
  3. PREDINOSONE [Concomitant]
  4. ALBUTEROL INHALER [Concomitant]
  5. FLONASE [Concomitant]
  6. DUONEBS [Concomitant]

REACTIONS (3)
  - Disease progression [None]
  - Hypotension [None]
  - Sepsis [None]
